FAERS Safety Report 7580754-6 (Version None)
Quarter: 2011Q2

REPORT INFORMATION
  Report Type: 
  Country: None (occurrence: None)
  Receive Date: 20110629
  Receipt Date: 20110621
  Transmission Date: 20111010
  Serious: Yes (Life-Threatening, Hospitalization, Disabling)
  Sender: FDA-Public Use
  Company Number: US-GILEAD-2011-0040931

PATIENT
  Sex: Female
  Weight: 62.652 kg

DRUGS (22)
  1. METFORMIN HCL [Concomitant]
     Indication: TYPE 2 DIABETES MELLITUS
  2. EFAVIRENZ [Suspect]
     Indication: HIV INFECTION
     Route: 048
     Dates: start: 20080911, end: 20110302
  3. VENLAFAXINE [Concomitant]
     Indication: DEPRESSION
  4. IBUPROFEN [Concomitant]
     Indication: SCIATICA
  5. TRAZODONE HCL [Concomitant]
     Indication: INSOMNIA
  6. METOCLOPRAMIDE [Concomitant]
     Indication: PRODUCT USED FOR UNKNOWN INDICATION
  7. LORAZEPAM [Concomitant]
     Indication: PRODUCT USED FOR UNKNOWN INDICATION
  8. LAMOTRIGINE [Concomitant]
     Indication: DEPRESSION
  9. TRIAMCINOLONE ACETONIDE [Concomitant]
     Indication: PRODUCT USED FOR UNKNOWN INDICATION
  10. ATRIPLA [Suspect]
     Indication: HIV INFECTION
     Route: 048
     Dates: start: 20080911, end: 20110302
  11. TRUVADA [Suspect]
     Indication: HIV INFECTION
     Route: 048
     Dates: start: 20080911
  12. ACYCLOVIR [Concomitant]
     Indication: GENITAL HERPES
  13. GEMFIBROZIL [Concomitant]
     Indication: PRODUCT USED FOR UNKNOWN INDICATION
  14. ZYRTEC [Concomitant]
     Indication: SEASONAL ALLERGY
  15. BUPROPION HCL [Concomitant]
     Indication: DEPRESSION
  16. ATENOLOL [Concomitant]
     Indication: HYPERTENSION
  17. LISINOPRIL [Concomitant]
     Indication: HYPERTENSION
  18. FAMOTIDINE [Concomitant]
     Indication: PRODUCT USED FOR UNKNOWN INDICATION
  19. TERCONAZOLE [Concomitant]
     Indication: FUNGAL INFECTION
  20. ACETAMINOPHEN W/ CODEINE [Concomitant]
     Indication: SCIATICA
  21. SIMVASTATIN [Concomitant]
     Indication: PRODUCT USED FOR UNKNOWN INDICATION
  22. BACTRIM [Concomitant]
     Indication: PROPHYLAXIS

REACTIONS (3)
  - LACTIC ACIDOSIS [None]
  - SEPTIC SHOCK [None]
  - RENAL FAILURE ACUTE [None]
